FAERS Safety Report 5355619-0 (Version None)
Quarter: 2007Q2

REPORT INFORMATION
  Report Type: 
  Country: None (occurrence: None)
  Receive Date: 20070613
  Receipt Date: 20070608
  Transmission Date: 20071010
  Serious: Yes (Hospitalization)
  Sender: FDA-Public Use
  Company Number: B0473638A

PATIENT
  Age: 63 Year
  Sex: Female

DRUGS (2)
  1. LAPATINIB [Suspect]
     Dosage: 1250MGM2 PER DAY
     Route: 048
     Dates: start: 20070330, end: 20070526
  2. CAPECITABINE [Suspect]
     Dosage: 2600MGM2 PER DAY
     Route: 048
     Dates: start: 20070330, end: 20070526

REACTIONS (3)
  - DISEASE PROGRESSION [None]
  - DYSPNOEA [None]
  - SUPERIOR VENA CAVAL OCCLUSION [None]
